FAERS Safety Report 6598056-3 (Version None)
Quarter: 2010Q1

REPORT INFORMATION
  Report Type: 
  Country: None (occurrence: None)
  Receive Date: 20100223
  Receipt Date: 20100218
  Transmission Date: 20100710
  Serious: Yes (Hospitalization, Other)
  Sender: FDA-Public Use
  Company Number: US-BRISTOL-MYERS SQUIBB COMPANY-14984967

PATIENT
  Age: 78 Year
  Sex: Female

DRUGS (1)
  1. IXABEPILONE [Suspect]
     Indication: ENDOMETRIAL CANCER
     Dosage: INTERRUPTED ON 23DEC2009 AFTER 2 CYCLES AT 65MG + RESTARTED ON 21JAN10:55MG FOR 2 CYCLES.
     Route: 042
     Dates: start: 20091022

REACTIONS (1)
  - INTESTINAL PERFORATION [None]
